FAERS Safety Report 9272327 (Version 1)
Quarter: 2013Q2

REPORT INFORMATION
  Report Type: Spontaneous
  Country: US (occurrence: US)
  Receive Date: 20130506
  Receipt Date: 20130506
  Transmission Date: 20140414
  Serious: No
  Sender: FDA-Public Use
  Company Number: US-ASTRAZENECA-2012SE92481

PATIENT
  Sex: Female

DRUGS (6)
  1. PRILOSEC [Suspect]
     Route: 048
     Dates: start: 20120930, end: 20121129
  2. CELEBREX [Concomitant]
     Dosage: UNKNOWN
  3. SYNTHROID [Concomitant]
     Dosage: UNKNOWN
  4. CARDIOVASCULAR SYSTEM DRUGS [Concomitant]
     Dosage: UNKNOWN
  5. CITALOPRAM [Concomitant]
     Dosage: UNKNOWN
  6. MULTIPLE VITAMINS [Concomitant]
     Dosage: UNKNOWN

REACTIONS (2)
  - Dysgeusia [Recovered/Resolved]
  - Intentional drug misuse [Unknown]
